APPROVED DRUG PRODUCT: OMEPRAZOLE
Active Ingredient: OMEPRAZOLE
Strength: 40MG
Dosage Form/Route: CAPSULE, DELAYED REL PELLETS;ORAL
Application: A202384 | Product #001
Applicant: LUPIN LTD
Approved: Aug 25, 2015 | RLD: No | RS: No | Type: DISCN